FAERS Safety Report 18897409 (Version 1)
Quarter: 2021Q1

REPORT INFORMATION
  Report Type: Spontaneous
  Country: US (occurrence: US)
  Receive Date: 20210215
  Receipt Date: 20210215
  Transmission Date: 20210420
  Serious: Yes (Other)
  Sender: FDA-Public Use
  Company Number: None

PATIENT

DRUGS (1)
  1. CASIRIVIMAB AND IMDEVIMAB (REGN10933/REGN10987) [Suspect]
     Active Substance: CASIRIVIMAB\IMDEVIMAB
     Dates: start: 20210213

REACTIONS (1)
  - Product preparation error [None]

NARRATIVE: CASE EVENT DATE: 20210213
